FAERS Safety Report 4400923-3 (Version None)
Quarter: 2004Q3

REPORT INFORMATION
  Report Type: 
  Country: None (occurrence: None)
  Receive Date: 20040907
  Receipt Date: 20030812
  Transmission Date: 20050211
  Serious: No
  Sender: FDA-Public Use
  Company Number: US-BRISTOL-MYERS SQUIBB COMPANY-12352993

PATIENT
  Age: 76 Year
  Sex: Male
  Weight: 93 kg

DRUGS (6)
  1. COUMADIN [Suspect]
     Indication: BLOOD VISCOSITY INCREASED
     Dosage: DOSAGE VARIES. CURRENTLY 5 MG THREE DAYS A WEEK, ALTERNATING WITH 7.5 MG FOUR DAYS A WEEK.
     Route: 048
  2. PRAVACHOL [Concomitant]
  3. AVAPRO [Concomitant]
  4. TERAZOSIN HCL [Concomitant]
  5. TRIAMTERENE [Concomitant]
  6. ASPIRIN [Concomitant]

REACTIONS (1)
  - INTERNATIONAL NORMALISED RATIO DECREASED [None]
